FAERS Safety Report 15955221 (Version 1)
Quarter: 2019Q1

REPORT INFORMATION
  Report Type: Report from Study
  Country: DE (occurrence: DE)
  Receive Date: 20190213
  Receipt Date: 20190213
  Transmission Date: 20190417
  Serious: No
  Sender: FDA-Public Use
  Company Number: DE-ROCHE-2264282

PATIENT
  Age: 37 Year
  Sex: Female
  Weight: 71 kg

DRUGS (8)
  1. QUETIAPINE. [Concomitant]
     Active Substance: QUETIAPINE
     Indication: DEPRESSION
     Route: 048
     Dates: start: 201802
  2. PREDNISOLUT [Concomitant]
     Active Substance: PREDNISOLONE
     Indication: PREMEDICATION
     Dosage: (START DOSE 1 X EVERY 2 WEEKS)
     Route: 042
     Dates: start: 20190110
  3. PANTOZOL [Concomitant]
     Active Substance: PANTOPRAZOLE SODIUM
     Indication: PREMEDICATION
     Dosage: (START DOSE 1 X EVERY 2 WEEKS)
     Route: 048
     Dates: start: 20190110
  4. HISTAKUT [Concomitant]
     Indication: PREMEDICATION
     Dosage: (START DOSE 1 X EVERY 2 WEEKS)
     Route: 042
     Dates: start: 20190110
  5. FAMPYRA [Concomitant]
     Active Substance: DALFAMPRIDINE
     Route: 048
  6. OCRELIZUMAB. [Suspect]
     Active Substance: OCRELIZUMAB
     Indication: MULTIPLE SCLEROSIS
     Route: 042
     Dates: start: 20190110, end: 20190124
  7. PARACETAMOL [Concomitant]
     Active Substance: ACETAMINOPHEN
     Indication: PREMEDICATION
     Dosage: (START DOSE 1 X EVERY 2 WEEKS)
     Route: 048
     Dates: start: 20190110
  8. BACLOFEN. [Concomitant]
     Active Substance: BACLOFEN
     Indication: MUSCLE SPASTICITY
     Route: 048

REACTIONS (1)
  - Cystitis [Recovered/Resolved]

NARRATIVE: CASE EVENT DATE: 20190116
